FAERS Safety Report 6340114-2 (Version None)
Quarter: 2009Q3

REPORT INFORMATION
  Report Type: 
  Country: None (occurrence: None)
  Receive Date: 20090903
  Receipt Date: 20090828
  Transmission Date: 20100115
  Serious: Yes (Other)
  Sender: FDA-Public Use
  Company Number: US-JNJCH-2009023480

PATIENT
  Sex: Female
  Weight: 25.9 kg

DRUGS (4)
  1. CHILDREN'S ZYRTEC ALLERGY GRAPE SYRUP DYE-FREE SUGAR-FREE [Suspect]
     Indication: HYPERSENSITIVITY
     Dosage: TEXT:ONE TEASPOON ONCE
     Route: 048
     Dates: start: 20090828, end: 20090828
  2. FLUTICASONE [Concomitant]
     Indication: HYPERSENSITIVITY
     Dosage: TEXT:UNSPECIFIED
     Route: 045
  3. FLOVENT [Concomitant]
     Indication: HYPERSENSITIVITY
     Dosage: TEXT:UNSPECIFIED
     Route: 055
  4. PATANOL [Concomitant]
     Indication: HYPERSENSITIVITY
     Dosage: TEXT:UNSPECIFIED
     Route: 047

REACTIONS (3)
  - ASTHMA [None]
  - PRODUCT QUALITY ISSUE [None]
  - THROAT IRRITATION [None]
